FAERS Safety Report 4364711-9 (Version None)
Quarter: 2004Q2

REPORT INFORMATION
  Report Type: 
  Country: None (occurrence: None)
  Receive Date: 20040525
  Receipt Date: 20040525
  Transmission Date: 20050107
  Serious: Yes (Disabling)
  Sender: FDA-Public Use
  Company Number: None

PATIENT
  Age: 47 Year
  Sex: Male
  Weight: 99.7913 kg

DRUGS (2)
  1. DEPO-MEDROL [Suspect]
     Dosage: 80 CC PLACED EPIDURAL
     Route: 008
     Dates: start: 20001025, end: 20001110
  2. DEPO-MEDROL [Suspect]
     Dosage: 120 CC EPIDURAL
     Route: 008
     Dates: start: 20010510, end: 20020710

REACTIONS (8)
  - ARACHNOIDITIS [None]
  - BURNING SENSATION [None]
  - DYSKINESIA [None]
  - FORMICATION [None]
  - PAIN EXACERBATED [None]
  - PAIN IN EXTREMITY [None]
  - POST PROCEDURAL COMPLICATION [None]
  - SENSORY DISTURBANCE [None]
